FAERS Safety Report 7496909-5 (Version None)
Quarter: 2011Q2

REPORT INFORMATION
  Report Type: 
  Country: None (occurrence: None)
  Receive Date: 20110523
  Receipt Date: 20110519
  Transmission Date: 20111010
  Serious: Yes (Other)
  Sender: FDA-Public Use
  Company Number: GB-PFIZER INC-2011079894

PATIENT
  Age: 40 Year
  Sex: Female

DRUGS (3)
  1. CITALOPRAM [Concomitant]
  2. VARENICLINE TARTRATE [Suspect]
     Indication: NICOTINE DEPENDENCE
     Dosage: UNK
  3. NICOTINE [Concomitant]
     Dosage: 4 MG, UNK

REACTIONS (1)
  - VIOLENCE-RELATED SYMPTOM [None]
